FAERS Safety Report 9995016 (Version 1)
Quarter: 2014Q1

REPORT INFORMATION
  Report Type: Spontaneous
  Country: US (occurrence: None)
  Receive Date: 20140218
  Receipt Date: 20140218
  Transmission Date: 20141002
  Serious: Yes (Other)
  Sender: FDA-Public Use
  Company Number: 1000052955

PATIENT
  Sex: Female
  Weight: 58.7 kg

DRUGS (1)
  1. VIIBRYD [Suspect]
     Route: 048
     Dates: start: 201312, end: 201401

REACTIONS (1)
  - Breast tenderness [None]
